FAERS Safety Report 12256551 (Version 1)
Quarter: 2016Q2

REPORT INFORMATION
  Report Type: Spontaneous
  Country: US (occurrence: None)
  Receive Date: 20160411
  Receipt Date: 20160411
  Transmission Date: 20160815
  Serious: Yes (Hospitalization)
  Sender: FDA-Public Use
  Company Number: None

PATIENT
  Age: 58 Year
  Sex: Male
  Weight: 113.8 kg

DRUGS (8)
  1. CYCLOBENZAPRINE (FLEXERIL) [Concomitant]
  2. DACLATASVIR 60 MG BRISTOL-MYERS SQUIBB [Suspect]
     Active Substance: DACLATASVIR
     Indication: HEPATITIS C
     Dosage: DAKLINZA QD PO
     Route: 048
     Dates: start: 20160203
  3. DOLOPHINE [Concomitant]
     Active Substance: METHADONE HYDROCHLORIDE
  4. SOFOSBUVIR 400 MG GILEAD SCIENCES, INC. [Suspect]
     Active Substance: SOFOSBUVIR
     Indication: HEPATITIS C
     Dosage: SOVALDI QD PO
     Route: 048
     Dates: start: 20160203
  5. PANTOPRAZOLE (PROTONIX) [Concomitant]
  6. COPEGUS [Suspect]
     Active Substance: RIBAVIRIN
     Indication: HEPATITIS C
     Dosage: 600MG BD PO
     Route: 048
     Dates: start: 20160203
  7. CIPROFLOXACIN HCL [Concomitant]
     Active Substance: CIPROFLOXACIN HYDROCHLORIDE
  8. METRONIDAZOLE (FLAGYL) [Concomitant]

REACTIONS (5)
  - Neck pain [None]
  - Musculoskeletal pain [None]
  - Hepatocellular carcinoma [None]
  - Hyponatraemia [None]
  - Palpitations [None]

NARRATIVE: CASE EVENT DATE: 20160328
